FAERS Safety Report 5339700-8 (Version None)
Quarter: 2007Q2

REPORT INFORMATION
  Report Type: 
  Country: None (occurrence: None)
  Receive Date: 20070531
  Receipt Date: 20070524
  Transmission Date: 20071010
  Serious: Yes (Hospitalization)
  Sender: FDA-Public Use
  Company Number: DEWYE718624MAY07

PATIENT
  Sex: Female

DRUGS (5)
  1. TAVOR [Suspect]
     Dosage: UNKNOWN
     Route: 048
  2. METOPROLOL SUCCINATE [Suspect]
     Dosage: UNKNOWN
     Route: 048
  3. SPALT LIQUA [Suspect]
     Dosage: UNKNOWN
     Route: 048
  4. ETHANOL [Suspect]
     Dosage: UNKNOWN
     Route: 048
  5. FLUOXETINE [Suspect]
     Dosage: UNKNOWN
     Route: 048

REACTIONS (3)
  - BLOOD ALCOHOL INCREASED [None]
  - INTENTIONAL OVERDOSE [None]
  - SUICIDE ATTEMPT [None]
